FAERS Safety Report 24900745 (Version 1)
Quarter: 2025Q1

REPORT INFORMATION
  Report Type: Spontaneous
  Country: FR (occurrence: FR)
  Receive Date: 20250129
  Receipt Date: 20250129
  Transmission Date: 20250409
  Serious: Yes (Hospitalization, Disabling)
  Sender: MYLAN
  Company Number: None

PATIENT
  Age: 90 Year
  Sex: Male
  Weight: 84 kg

DRUGS (6)
  1. ATORVASTATIN [Suspect]
     Active Substance: ATORVASTATIN
     Indication: Hypercholesterolaemia
     Dosage: 80 MILLIGRAM, QD
     Route: 048
  2. EZETIMIBE [Suspect]
     Active Substance: EZETIMIBE
     Indication: Hypercholesterolaemia
     Dosage: 10 MILLIGRAM, QD
     Route: 048
  3. SILODOSIN [Suspect]
     Active Substance: SILODOSIN
     Indication: Product used for unknown indication
     Dosage: 8 MILLIGRAM, QD
     Route: 048
  4. ACEBUTOLOL [Suspect]
     Active Substance: ACEBUTOLOL
     Indication: Sinus node dysfunction
     Dosage: 50 MILLIGRAM, BID (200MG: 1/4 TABLET MORNING AND EVENING (SINCE AT LEAST 2000)
     Route: 048
     Dates: end: 20241216
  5. KARDEGIC [Suspect]
     Active Substance: ASPIRIN DL-LYSINE
     Indication: Myocardial ischaemia
     Dosage: 75 MILLIGRAM, QD
     Route: 048
  6. LACTITOL [Suspect]
     Active Substance: LACTITOL
     Indication: Product used for unknown indication
     Dosage: 2 DOSAGE FORM, QD
     Route: 048
     Dates: end: 20241216

REACTIONS (7)
  - Interstitial lung disease [Not Recovered/Not Resolved]
  - Loss of personal independence in daily activities [Unknown]
  - General physical health deterioration [Unknown]
  - Cognitive disorder [Unknown]
  - Decreased appetite [Unknown]
  - Disorientation [Unknown]
  - Fall [Unknown]

NARRATIVE: CASE EVENT DATE: 20241216
